FAERS Safety Report 8913076 (Version 3)
Quarter: 2012Q4

REPORT INFORMATION
  Report Type: Spontaneous
  Country: DE (occurrence: None)
  Receive Date: 20121113
  Receipt Date: 20121227
  Transmission Date: 20130627
  Serious: Yes (Other)
  Sender: FDA-Public Use
  Company Number: DE-1195000

PATIENT
  Age: 84 Year
  Sex: Male

DRUGS (9)
  1. AZOPT 1% [Suspect]
     Route: 047
  2. BISOPROLOL [Concomitant]
  3. FUROSEMIDE [Concomitant]
  4. ASS 1 A PHARMA [Concomitant]
  5. TRAMADOL [Concomitant]
  6. ALDACTONE [Concomitant]
  7. FOLIC [Concomitant]
  8. PANTOPRAZOLE [Concomitant]
  9. XALATAN [Concomitant]

REACTIONS (1)
  - Red blood cell count decreased [None]
